FAERS Safety Report 5943489-9 (Version None)
Quarter: 2008Q4

REPORT INFORMATION
  Report Type: 
  Country: None (occurrence: None)
  Receive Date: 20081106
  Receipt Date: 20081029
  Transmission Date: 20090506
  Serious: Yes (Disabling)
  Sender: FDA-Public Use
  Company Number: FR-ELI_LILLY_AND_COMPANY-FR200811000060

PATIENT
  Age: 68 Year
  Sex: Male

DRUGS (2)
  1. HUMULIN N [Suspect]
     Route: 058
     Dates: start: 20060101
  2. ACTOS [Concomitant]

REACTIONS (4)
  - CARDIAC DISORDER [None]
  - GAIT DISTURBANCE [None]
  - RESPIRATORY DISORDER [None]
  - WEIGHT INCREASED [None]
